FAERS Safety Report 6213224-8 (Version None)
Quarter: 2009Q2

REPORT INFORMATION
  Report Type: 
  Country: None (occurrence: None)
  Receive Date: 20090602
  Receipt Date: 20090602
  Transmission Date: 20091009
  Serious: Yes (Hospitalization)
  Sender: FDA-Public Use
  Company Number: None

PATIENT
  Age: 60 Year
  Sex: Male
  Weight: 91 kg

DRUGS (1)
  1. ACETAMINOPHEN AND HYDROCODONE BITARTRATE [Suspect]
     Indication: PAIN
     Dosage: 1 TAB PRN PO
     Route: 048
     Dates: start: 20090521, end: 20090524

REACTIONS (8)
  - ABASIA [None]
  - AGITATION [None]
  - CONFUSIONAL STATE [None]
  - HYPERGLYCAEMIA [None]
  - HYPONATRAEMIA [None]
  - MENTAL STATUS CHANGES [None]
  - MOANING [None]
  - SEDATION [None]
